FAERS Safety Report 24301016 (Version 1)
Quarter: 2024Q3

REPORT INFORMATION
  Report Type: Spontaneous
  Country: CN (occurrence: CN)
  Receive Date: 20240910
  Receipt Date: 20240910
  Transmission Date: 20241016
  Serious: Yes (Hospitalization, Disabling)
  Sender: NOVO NORDISK
  Company Number: None

PATIENT
  Age: 72 Year
  Sex: Female
  Weight: 85 kg

DRUGS (1)
  1. OZEMPIC [Suspect]
     Active Substance: SEMAGLUTIDE
     Indication: Type 2 diabetes mellitus
     Dosage: 0.25 MG, QW
     Route: 058
     Dates: start: 20240403, end: 20240821

REACTIONS (2)
  - Gastrointestinal disorder [Recovering/Resolving]
  - Impaired gastric emptying [Unknown]

NARRATIVE: CASE EVENT DATE: 20240726
